FAERS Safety Report 8433406-4 (Version None)
Quarter: 2012Q2

REPORT INFORMATION
  Report Type: 
  Country: None (occurrence: None)
  Receive Date: 20120613
  Receipt Date: 20120611
  Transmission Date: 20120825
  Serious: Yes (Hospitalization, Other)
  Sender: FDA-Public Use
  Company Number: US-MERCK-1104USA01356

PATIENT
  Age: 47 Year
  Sex: Female
  Weight: 75 kg

DRUGS (4)
  1. FOSAMAX [Suspect]
     Indication: OSTEOPENIA
     Route: 048
     Dates: start: 19960604, end: 20020101
  2. CORTICOSTEROIDS (UNSPECIFIED) [Concomitant]
     Route: 065
     Dates: start: 19910101
  3. FOSAMAX [Suspect]
     Indication: OSTEOPOROSIS PROPHYLAXIS
     Route: 048
     Dates: start: 19960604, end: 20020101
  4. BONIVA [Suspect]
     Indication: OSTEOPOROSIS
     Route: 048
     Dates: start: 20020101, end: 20090101

REACTIONS (54)
  - CONJUNCTIVITIS ALLERGIC [None]
  - ANOSMIA [None]
  - ANXIETY [None]
  - HEADACHE [None]
  - PERIPHERAL VASCULAR DISORDER [None]
  - OVERWEIGHT [None]
  - LUMBAR RADICULOPATHY [None]
  - CAROTID ARTERY DISEASE [None]
  - DIVERTICULUM [None]
  - HAND FRACTURE [None]
  - NECK PAIN [None]
  - VERTIGO [None]
  - MENISCUS LESION [None]
  - INFECTION [None]
  - HYPOACUSIS [None]
  - BARRETT'S OESOPHAGUS [None]
  - BONE FORMATION INCREASED [None]
  - PALPITATIONS [None]
  - RHINITIS ATROPHIC [None]
  - DYSLIPIDAEMIA [None]
  - HEAD INJURY [None]
  - ARTHROPATHY [None]
  - VASCULAR CALCIFICATION [None]
  - FOOT FRACTURE [None]
  - FRACTURE NONUNION [None]
  - TRICUSPID VALVE INCOMPETENCE [None]
  - SINUS DISORDER [None]
  - MIGRAINE [None]
  - INTERVERTEBRAL DISC PROTRUSION [None]
  - DIZZINESS [None]
  - FALL [None]
  - HAEMORRHOIDAL HAEMORRHAGE [None]
  - GASTROOESOPHAGEAL REFLUX DISEASE [None]
  - VITAMIN D DEFICIENCY [None]
  - FEMUR FRACTURE [None]
  - OSTEOARTHRITIS [None]
  - PAIN IN EXTREMITY [None]
  - OTITIS MEDIA CHRONIC [None]
  - ABDOMINAL DISCOMFORT [None]
  - CARDIAC MURMUR [None]
  - OTORRHOEA [None]
  - NASAL POLYPS [None]
  - SPINAL OSTEOARTHRITIS [None]
  - EAR INFECTION STAPHYLOCOCCAL [None]
  - EXOSTOSIS [None]
  - ERUCTATION [None]
  - VISUAL IMPAIRMENT [None]
  - THYROID NEOPLASM [None]
  - OROPHARYNGEAL PAIN [None]
  - SINUS POLYP [None]
  - SELF-MEDICATION [None]
  - RAYNAUD'S PHENOMENON [None]
  - MITRAL VALVE INCOMPETENCE [None]
  - EAR PRURITUS [None]
